FAERS Safety Report 11156574 (Version 1)
Quarter: 2015Q2

REPORT INFORMATION
  Report Type: Spontaneous
  Country: GB (occurrence: GB)
  Receive Date: 20150602
  Receipt Date: 20150602
  Transmission Date: 20150821
  Serious: Yes (Hospitalization)
  Sender: FDA-Public Use
  Company Number: GB-MYLANLABS-2015M1018260

PATIENT

DRUGS (2)
  1. KETAMINE [Suspect]
     Active Substance: KETAMINE
     Dosage: 10-15 G/DAY
     Route: 065
  2. KETAMINE [Suspect]
     Active Substance: KETAMINE
     Dosage: 1-2G PER WEEK, AND THEN INCREASED TO 10-15 G/DAY
     Route: 065

REACTIONS (5)
  - Renal failure [Not Recovered/Not Resolved]
  - Drug abuse [Unknown]
  - Ureteric obstruction [Unknown]
  - Ureteritis [Unknown]
  - Cystitis ulcerative [Unknown]
